FAERS Safety Report 5700014-5 (Version None)
Quarter: 2008Q2

REPORT INFORMATION
  Report Type: 
  Country: None (occurrence: None)
  Receive Date: 20080410
  Receipt Date: 20080403
  Transmission Date: 20081010
  Serious: Yes (Hospitalization)
  Sender: FDA-Public Use
  Company Number: DE-ASTRAZENECA-2008PK00712

PATIENT
  Sex: Male

DRUGS (2)
  1. NEXIUM [Suspect]
     Indication: REFLUX OESOPHAGITIS
     Dosage: 3 TABLETS USED
     Route: 048
     Dates: start: 20071001
  2. NEXIUM [Suspect]
     Route: 048
     Dates: start: 20080101

REACTIONS (3)
  - DIZZINESS [None]
  - HEADACHE [None]
  - SUBDURAL HAEMATOMA [None]
